FAERS Safety Report 20986947 (Version 1)
Quarter: 2022Q2

REPORT INFORMATION
  Report Type: Spontaneous
  Country: CN (occurrence: None)
  Receive Date: 20220621
  Receipt Date: 20220621
  Transmission Date: 20220720
  Serious: Yes (Other)
  Sender: FDA-Public Use
  Company Number: CN-ROCHE-3116729

PATIENT
  Age: 38 Year
  Sex: Female

DRUGS (9)
  1. TRASTUZUMAB [Suspect]
     Active Substance: TRASTUZUMAB
     Indication: Invasive breast carcinoma
     Dosage: HPT
     Route: 065
     Dates: start: 20210721
  2. TRASTUZUMAB [Suspect]
     Active Substance: TRASTUZUMAB
     Dosage: HPT
     Route: 065
     Dates: start: 20210817, end: 20211228
  3. TRASTUZUMAB [Suspect]
     Active Substance: TRASTUZUMAB
     Dosage: HPX
     Route: 065
     Dates: start: 20220223
  4. PERTUZUMAB [Suspect]
     Active Substance: PERTUZUMAB
     Indication: Invasive breast carcinoma
     Dosage: HPT
     Route: 065
     Dates: start: 20210721
  5. PERTUZUMAB [Suspect]
     Active Substance: PERTUZUMAB
     Dosage: HPT
     Route: 065
     Dates: start: 20210817, end: 20211228
  6. PERTUZUMAB [Suspect]
     Active Substance: PERTUZUMAB
     Dosage: HPX
     Route: 065
  7. CAPECITABINE [Concomitant]
     Active Substance: CAPECITABINE
     Indication: Invasive breast carcinoma
     Dosage: HPX
     Route: 048
     Dates: start: 20220223
  8. PACLITAXEL [Concomitant]
     Active Substance: PACLITAXEL
     Indication: Invasive breast carcinoma
     Dosage: HPT
     Route: 065
     Dates: start: 20210721
  9. PACLITAXEL [Concomitant]
     Active Substance: PACLITAXEL
     Dosage: HPT
     Dates: start: 20210817, end: 20211228

REACTIONS (1)
  - Febrile neutropenia [Recovering/Resolving]
